FAERS Safety Report 12280837 (Version 2)
Quarter: 2016Q2

REPORT INFORMATION
  Report Type: Spontaneous
  Country: US (occurrence: US)
  Receive Date: 20160419
  Receipt Date: 20160509
  Transmission Date: 20160815
  Serious: No
  Sender: FDA-Public Use
  Company Number: US-BRISTOL-MYERS SQUIBB COMPANY-BMS-2016-029144

PATIENT
  Age: 32 Year
  Sex: Female

DRUGS (2)
  1. YERVOY [Suspect]
     Active Substance: IPILIMUMAB
     Dosage: 900 MG, UNK
     Route: 042
  2. YERVOY [Suspect]
     Active Substance: IPILIMUMAB
     Indication: MALIGNANT MELANOMA
     Dosage: 925 MG, QCYCLE
     Route: 042
     Dates: start: 20160125, end: 20160307

REACTIONS (2)
  - Drug intolerance [Unknown]
  - Cellulitis [Unknown]

NARRATIVE: CASE EVENT DATE: 20160218
